FAERS Safety Report 9587234 (Version 1)
Quarter: 2013Q4

REPORT INFORMATION
  Report Type: Spontaneous
  Country: CN (occurrence: CN)
  Receive Date: 20131003
  Receipt Date: 20131003
  Transmission Date: 20140711
  Serious: Yes (Hospitalization, Other)
  Sender: FDA-Public Use
  Company Number: CN-WATSON-2013-17077

PATIENT
  Age: 43 Year
  Sex: Female

DRUGS (2)
  1. DESMOPRESSIN (UNKNOWN) [Suspect]
     Indication: HORMONE REPLACEMENT THERAPY
     Dosage: MINIM 0.5 MG, TWICE DAILY
     Route: 048
  2. PREDNISONE [Concomitant]
     Indication: HORMONE REPLACEMENT THERAPY
     Dosage: 12 MG, DAILY
     Route: 065

REACTIONS (1)
  - Posterior reversible encephalopathy syndrome [Recovered/Resolved]
